FAERS Safety Report 5189950-9 (Version None)
Quarter: 2006Q4

REPORT INFORMATION
  Report Type: 
  Country: None (occurrence: None)
  Receive Date: 20061215
  Receipt Date: 20061213
  Transmission Date: 20070319
  Serious: Yes (Hospitalization)
  Sender: FDA-Public Use
  Company Number: 2006149640

PATIENT
  Age: 64 Year
  Sex: Female

DRUGS (7)
  1. SULFASALAZINE [Suspect]
     Indication: PSORIASIS
     Dosage: 2000 MG, ORAL
     Route: 048
     Dates: start: 20050601, end: 20060701
  2. TREXAN (NALTREXONE HYDROCHLORIDE) [Concomitant]
  3. LINATIL (ENALAPRIL MALEATE) [Concomitant]
  4. METFOREM (METFORMIN HYDROCHLORIDE) [Concomitant]
  5. THYROXIN (LEVOTHYROXINE SODIUM) [Concomitant]
  6. EMCONCOR (BISOPROLOL) [Concomitant]
  7. INSULIN [Concomitant]

REACTIONS (2)
  - LUPUS-LIKE SYNDROME [None]
  - MYOCARDITIS [None]
